FAERS Safety Report 10759086 (Version 4)
Quarter: 2015Q3

REPORT INFORMATION
  Report Type: Spontaneous
  Country: US (occurrence: US)
  Receive Date: 20150203
  Receipt Date: 20150907
  Transmission Date: 20151125
  Serious: Yes (Hospitalization, Other)
  Sender: FDA-Public Use
  Company Number: US-BAYER-2015-016207

PATIENT
  Age: 21 Year
  Sex: Female
  Weight: 56.69 kg

DRUGS (2)
  1. ALLEGRA [Concomitant]
     Active Substance: FEXOFENADINE HYDROCHLORIDE
  2. MIRENA [Suspect]
     Active Substance: LEVONORGESTREL
     Indication: CONTRACEPTION
     Dosage: 20 MCG/24HR, CONT
     Route: 015
     Dates: start: 20080827, end: 20130110

REACTIONS (19)
  - Genital haemorrhage [None]
  - Abdominal pain [None]
  - Contusion [None]
  - Anxiety [None]
  - Back pain [None]
  - Thrombosis [None]
  - Internal injury [None]
  - Pregnancy with contraceptive device [None]
  - Emotional distress [None]
  - Pelvic pain [None]
  - Injury [None]
  - Scar [None]
  - Fear [None]
  - Depressed mood [None]
  - Uterine perforation [None]
  - Depression [None]
  - Drug ineffective [None]
  - Device issue [None]
  - Medical device discomfort [None]

NARRATIVE: CASE EVENT DATE: 200809
